FAERS Safety Report 8360518-6 (Version None)
Quarter: 2012Q2

REPORT INFORMATION
  Report Type: 
  Country: None (occurrence: None)
  Receive Date: 20120515
  Receipt Date: 20120504
  Transmission Date: 20120825
  Serious: Yes (Hospitalization)
  Sender: FDA-Public Use
  Company Number: FR-SANOFI-AVENTIS-2012SA031844

PATIENT
  Age: 76 Year
  Sex: Female
  Weight: 60.5 kg

DRUGS (2)
  1. ANAFRANIL [Suspect]
     Route: 048
     Dates: end: 20110426
  2. LASIX [Suspect]
     Route: 048
     Dates: end: 20110424

REACTIONS (2)
  - FALL [None]
  - ORTHOSTATIC HYPOTENSION [None]
